FAERS Safety Report 15926374 (Version 3)
Quarter: 2019Q1

REPORT INFORMATION
  Report Type: Spontaneous
  Country: GR (occurrence: GR)
  Receive Date: 20190206
  Receipt Date: 20190219
  Transmission Date: 20190417
  Serious: Yes (Hospitalization)
  Sender: FDA-Public Use
  Company Number: GR-IGSA-SR10007759

PATIENT
  Age: 2 Year
  Sex: Male

DRUGS (5)
  1. BEXSERO [Suspect]
     Active Substance: MENINGOCOCCAL GROUP B VACCINE
     Indication: PROPHYLAXIS
     Dosage: UNK
  2. HUMAN NORMAL IMMUNOGLOBULIN (IV) [Suspect]
     Active Substance: HUMAN IMMUNOGLOBULIN G
     Indication: KAWASAKI^S DISEASE
     Dosage: 2000 MG/KG, QD
  3. AMOXICILLIN CLAVULANIC ACID [Concomitant]
     Active Substance: AMOXICILLIN\CLAVULANIC ACID
     Indication: PRODUCT USED FOR UNKNOWN INDICATION
  4. CEFUROXIME. [Concomitant]
     Active Substance: CEFUROXIME
     Indication: PRODUCT USED FOR UNKNOWN INDICATION
  5. ANTIHISTAMINES [Concomitant]
     Active Substance: ANTIHISTAMINES NOS
     Indication: PRODUCT USED FOR UNKNOWN INDICATION

REACTIONS (12)
  - Oedema peripheral [Unknown]
  - Pyrexia [Recovering/Resolving]
  - Lymphadenitis [Unknown]
  - Blepharitis [Unknown]
  - Kawasaki^s disease [Unknown]
  - Stomatitis [Unknown]
  - Gingivitis [Unknown]
  - Conjunctivitis [Unknown]
  - Diarrhoea [Unknown]
  - Skin exfoliation [Unknown]
  - Lip oedema [Unknown]
  - Rash maculo-papular [Unknown]
